FAERS Safety Report 18595404 (Version 3)
Quarter: 2021Q1

REPORT INFORMATION
  Report Type: Report from Study
  Country: BR (occurrence: BR)
  Receive Date: 20201209
  Receipt Date: 20210113
  Transmission Date: 20210419
  Serious: Yes (Hospitalization, Other)
  Sender: FDA-Public Use
  Company Number: NVSC2020BR326904

PATIENT
  Age: 88 Year
  Sex: Male

DRUGS (2)
  1. EXELON [Suspect]
     Active Substance: RIVASTIGMINE TARTRATE
     Indication: PRODUCT USED FOR UNKNOWN INDICATION
     Dosage: UNK
     Route: 065
  2. EXELON [Suspect]
     Active Substance: RIVASTIGMINE TARTRATE
     Dosage: 9.5 MG, QD [PATCH (10 CM2) 18MG RIVASTIGMINE BASE]
     Route: 062

REACTIONS (8)
  - Fluid retention [Unknown]
  - Cardiac failure [Recovered/Resolved]
  - Sepsis [Unknown]
  - Oedema [Unknown]
  - Disorientation [Unknown]
  - Erysipelas [Unknown]
  - Renal failure [Recovered/Resolved]
  - Localised oedema [Unknown]

NARRATIVE: CASE EVENT DATE: 201907
